FAERS Safety Report 7105082-4 (Version None)
Quarter: 2010Q4

REPORT INFORMATION
  Report Type: 
  Country: None (occurrence: None)
  Receive Date: 20101116
  Receipt Date: 20101104
  Transmission Date: 20110411
  Serious: Yes (Death, Hospitalization)
  Sender: FDA-Public Use
  Company Number: PL-CELGENEUS-129-21880-10052091

PATIENT
  Sex: Female
  Weight: 82 kg

DRUGS (9)
  1. REVLIMID [Suspect]
     Indication: MULTIPLE MYELOMA
     Route: 048
     Dates: start: 20100125, end: 20100411
  2. REVLIMID [Suspect]
     Route: 048
     Dates: start: 20100429, end: 20100520
  3. DEXAMETHASONE [Concomitant]
     Indication: MULTIPLE MYELOMA
     Route: 048
     Dates: start: 20100201, end: 20100520
  4. DEXAMETHASONE [Concomitant]
     Route: 065
     Dates: start: 20100813, end: 20100816
  5. BISOCARD [Concomitant]
     Indication: ATRIAL FIBRILLATION
     Route: 065
  6. PROPAFENONE HCL [Concomitant]
     Indication: ATRIAL FLUTTER
     Route: 065
  7. PROPAFENONE HCL [Concomitant]
     Route: 051
     Dates: start: 20100810
  8. LMWH [Concomitant]
     Indication: THROMBOSIS PROPHYLAXIS
     Route: 065
  9. CORDARONE [Concomitant]
     Indication: ATRIAL FIBRILLATION
     Route: 065

REACTIONS (6)
  - CARDIOPULMONARY FAILURE [None]
  - DISEASE PROGRESSION [None]
  - FEBRILE NEUTROPENIA [None]
  - HAEMATOMA [None]
  - PANCYTOPENIA [None]
  - TRANSIENT ISCHAEMIC ATTACK [None]
